FAERS Safety Report 20087428 (Version 2)
Quarter: 2021Q4

REPORT INFORMATION
  Report Type: Report from Study
  Country: PL (occurrence: PL)
  Receive Date: 20211118
  Receipt Date: 20211127
  Transmission Date: 20220303
  Serious: Yes (Death, Hospitalization, Other)
  Sender: FDA-Public Use
  Company Number: PL-AMGEN-POLCT2021180807

PATIENT
  Age: 68 Year
  Sex: Female
  Weight: 71 kg

DRUGS (14)
  1. CARFILZOMIB [Suspect]
     Active Substance: CARFILZOMIB
     Indication: Plasma cell myeloma
     Dosage: 97 MILLIGRAM, PER CHEMO REGIM
     Route: 042
     Dates: start: 20210630
  2. LENALIDOMIDE [Suspect]
     Active Substance: LENALIDOMIDE
     Indication: Plasma cell myeloma
     Dosage: 25 MILLIGRAM, PER CHEMO REGIM
     Route: 048
     Dates: start: 20210630
  3. DEXAMETHASONE [Suspect]
     Active Substance: DEXAMETHASONE
     Indication: Plasma cell myeloma
     Dosage: 40 MILLIGRAM, PER CHEMO REGIM
     Route: 042
     Dates: start: 20210630
  4. HASCOVIR [Concomitant]
     Dosage: 0.4 GRAM, BID
     Dates: start: 20210701
  5. ALLOPURINOL [Concomitant]
     Active Substance: ALLOPURINOL
     Dosage: 0.1 GRAM, BID
     Dates: start: 20210601
  6. PRAZOL [OMEPRAZOLE] [Concomitant]
     Dosage: 0.02 GRAM, QD
     Dates: start: 20210527
  7. ENOXAPARIN SODIUM [Concomitant]
     Active Substance: ENOXAPARIN SODIUM
     Dosage: 0.04 GRAM, QD
     Route: 058
     Dates: start: 20210528
  8. ZOLEDRONIC ACID [Concomitant]
     Active Substance: ZOLEDRONIC ACID
     Dosage: 4 MILLIGRAM EVERY WEEK
     Route: 042
     Dates: start: 20210701
  9. OSTEOCAL [Concomitant]
     Dosage: 2 TABLET QD
     Route: 048
     Dates: start: 20210707
  10. LYRICA [Concomitant]
     Active Substance: PREGABALIN
     Dosage: 0.15 GRAM, BID
     Route: 048
     Dates: start: 20210528
  11. ESCITALOPRAM [Concomitant]
     Active Substance: ESCITALOPRAM OXALATE
     Dosage: 0.01 GRAM, QD
     Route: 048
     Dates: start: 20210529
  12. MOLEKIN D3+K2 [Concomitant]
     Indication: Vitamin supplementation
     Dosage: 2 TABLET PER DAY
     Route: 048
     Dates: start: 20210707
  13. ROSUVASTATIN CALCIUM [Concomitant]
     Active Substance: ROSUVASTATIN CALCIUM
     Indication: Hypercholesterolaemia
     Dosage: 0.02 GRAM, QD
     Route: 048
     Dates: start: 20150101
  14. MELODYN [BUPRENORPHINE] [Concomitant]
     Indication: Analgesic therapy
     Dosage: 70 MICROGRAM EVERY 4 DAYS
     Dates: start: 20210530

REACTIONS (3)
  - COVID-19 [Fatal]
  - Lower gastrointestinal haemorrhage [Fatal]
  - Acute kidney injury [Fatal]

NARRATIVE: CASE EVENT DATE: 20211101
